FAERS Safety Report 9904165 (Version 2)
Quarter: 2014Q2

REPORT INFORMATION
  Report Type: Spontaneous
  Country: US (occurrence: US)
  Receive Date: 20140218
  Receipt Date: 20140612
  Transmission Date: 20141212
  Serious: No
  Sender: FDA-Public Use
  Company Number: US-BIOGENIDEC-2014BI013797

PATIENT
  Age: 50 Year
  Sex: Female

DRUGS (5)
  1. TECFIDERA [Suspect]
     Indication: MULTIPLE SCLEROSIS
     Route: 048
     Dates: start: 20140113, end: 20140119
  2. TECFIDERA [Suspect]
     Indication: MULTIPLE SCLEROSIS
     Route: 048
     Dates: start: 20140120
  3. TECFIDERA [Suspect]
     Indication: MULTIPLE SCLEROSIS
     Route: 048
     Dates: start: 20140322, end: 20140514
  4. ASPIRIN [Concomitant]
     Indication: PROPHYLAXIS
  5. PRILOSEC [Concomitant]
     Indication: GASTROINTESTINAL DISORDER

REACTIONS (5)
  - Drug intolerance [Not Recovered/Not Resolved]
  - Abdominal pain [Not Recovered/Not Resolved]
  - Pyrexia [Not Recovered/Not Resolved]
  - Cold sweat [Not Recovered/Not Resolved]
  - Abdominal pain upper [Not Recovered/Not Resolved]
